FAERS Safety Report 15544553 (Version 2)
Quarter: 2019Q2

REPORT INFORMATION
  Report Type: Spontaneous
  Country: CN (occurrence: CN)
  Receive Date: 20181024
  Receipt Date: 20190426
  Transmission Date: 20190711
  Serious: Yes (Other)
  Sender: FDA-Public Use
  Company Number: CN-SUN PHARMACEUTICAL INDUSTRIES LTD-2018R1-189013

PATIENT
  Age: 19 Year
  Sex: Male

DRUGS (1)
  1. DEXAMETHASONE. [Suspect]
     Active Substance: DEXAMETHASONE
     Indication: ADRENOGENITAL SYNDROME
     Dosage: 0.75 MG, DAILY
     Route: 065

REACTIONS (14)
  - Hyperlipidaemia [Unknown]
  - Cushingoid [Unknown]
  - Overdose [Unknown]
  - Hyperuricaemia [Unknown]
  - Cushing^s syndrome [Unknown]
  - Hepatic steatosis [Unknown]
  - Hypertension [Recovered/Resolved]
  - Acanthosis nigricans [Unknown]
  - Body tinea [Unknown]
  - Weight increased [Recovered/Resolved]
  - Acne [Unknown]
  - Skin striae [Unknown]
  - Hyperinsulinaemia [Unknown]
  - Ecchymosis [Unknown]
